FAERS Safety Report 23486292 (Version 2)
Quarter: 2024Q1

REPORT INFORMATION
  Report Type: Spontaneous
  Country: JP (occurrence: JP)
  Receive Date: 20240206
  Receipt Date: 20240226
  Transmission Date: 20240410
  Serious: Yes (Hospitalization, Other)
  Sender: FDA-Public Use
  Company Number: JP-TEVA-VS-3150117

PATIENT
  Age: 7 Decade
  Sex: Male

DRUGS (28)
  1. LEVOFLOXACIN [Suspect]
     Active Substance: LEVOFLOXACIN
     Indication: Infection prophylaxis
     Dosage: 1 TABLET ONCE A DAY AFTER DINNER
     Route: 048
  2. SILODOSIN [Concomitant]
     Active Substance: SILODOSIN
     Indication: Product used for unknown indication
     Dosage: 2 TABLETS, TWICE A DAY, AFTER BREAKFAST AND DINNER
     Route: 048
  3. Sugar [Concomitant]
     Indication: Product used for unknown indication
     Dosage: 500 ML/DAY LIQUID WITH THIAMINE, UNSPECIFIED AMINO ACIDS AND ELECTROLYTES;  (ADMINISTRATION WAS C...
     Route: 065
  4. Dapaglifozin propylene glycolate hydrate [Concomitant]
     Indication: Product used for unknown indication
     Dosage: 1 TABLET, ONCE A DAY, AFTER BREAKFAST
     Route: 048
  5. SULFAMETHOXAZOLE\TRIMETHOPRIM [Concomitant]
     Active Substance: SULFAMETHOXAZOLE\TRIMETHOPRIM
     Indication: Infection prophylaxis
     Dosage: 4 TABLETS, TWICE A DAY, AFTER BREAKFAST AND DINNER
     Route: 048
  6. METHADONE HYDROCHLORIDE [Interacting]
     Active Substance: METHADONE HYDROCHLORIDE
     Indication: Cancer pain
     Dosage: TIME INTERVAL: 0.33333333 DAYS: 3 TABLETS, THREE TIMES A DAY (8:00 A.M., 2:00P.M., AND 9:00P.M.);...
     Route: 048
  7. LINACLOTIDE [Concomitant]
     Active Substance: LINACLOTIDE
     Indication: Product used for unknown indication
     Dosage: 1 TABLET, ONCE A DAY, BEFORE BREAKFAST
     Route: 048
  8. ACETAMINOPHEN [Concomitant]
     Active Substance: ACETAMINOPHEN
     Indication: Product used for unknown indication
     Dosage: 4 TABLETS, FOUR TIMES A DAY, AFTER EACH MEAL AND AT BEDTIME
     Route: 048
  9. MIROGABALIN BESYLATE [Concomitant]
     Active Substance: MIROGABALIN BESYLATE
     Indication: Product used for unknown indication
     Dosage: TWO 10MG TABLETS, TWICE A DAY, AFTER BREAKFAST AND DINNER
     Route: 048
  10. MIROGABALIN BESYLATE [Concomitant]
     Active Substance: MIROGABALIN BESYLATE
     Indication: Product used for unknown indication
     Dosage: TWO 5MG TABLETS, TWICE A DAY, AFTER BREAKFAST AND DINNER
     Route: 048
  11. FLUOROURACIL [Suspect]
     Active Substance: FLUOROURACIL
     Indication: Pancreatic carcinoma
     Dosage: 4 COURSES AS FOLFIRINOX REGIMEN
     Route: 065
  12. FLUOROURACIL [Suspect]
     Active Substance: FLUOROURACIL
     Indication: Pancreatic carcinoma
     Dosage: 2 COURSES WITH IRINOTECAN AND FOLINIC ACID
     Route: 065
  13. PACLITAXEL [Suspect]
     Active Substance: PACLITAXEL
     Indication: Pancreatic carcinoma
     Dosage: 10 COURSES
     Route: 065
  14. LACTULOSE [Suspect]
     Active Substance: LACTULOSE
     Indication: Product used for unknown indication
     Dosage: JELLY; 12G; 4 PACKETS TWICE A DAY (AFTER BREAKFAST AND DINNER)
     Route: 048
  15. DEXAMETHASONE SODIUM PHOSPHATE [Concomitant]
     Active Substance: DEXAMETHASONE PHOSPHATE\DEXAMETHASONE SODIUM PHOSPHATE
     Indication: Product used for unknown indication
     Dosage: (ADMINISTRATION WAS COMPLETED ON DAY 16)
     Route: 065
  16. CLOSTRIDIUM BUTYRICUM SPORES STRAIN M-55 [Concomitant]
     Active Substance: CLOSTRIDIUM BUTYRICUM SPORES STRAIN M-55
     Indication: Product used for unknown indication
     Dosage: TIME INTERVAL: 0.33333333 DAYS: 3 TABLETS, THREE TIMES A DAY, AFTER EACH MEAL
     Route: 048
  17. OXYCODONE HYDROCHLORIDE [Concomitant]
     Active Substance: OXYCODONE HYDROCHLORIDE
     Indication: Cancer pain
     Route: 065
  18. OXYCODONE HYDROCHLORIDE [Concomitant]
     Active Substance: OXYCODONE HYDROCHLORIDE
     Indication: Cancer pain
     Dosage: ON DAY 16
     Route: 065
  19. OXYCODONE HYDROCHLORIDE [Concomitant]
     Active Substance: OXYCODONE HYDROCHLORIDE
     Indication: Cancer pain
     Route: 065
  20. OXYCODONE HYDROCHLORIDE [Concomitant]
     Active Substance: OXYCODONE HYDROCHLORIDE
     Indication: Cancer pain
     Dosage: BY DAY 10
     Route: 065
  21. OXYCODONE HYDROCHLORIDE [Concomitant]
     Active Substance: OXYCODONE HYDROCHLORIDE
     Indication: Cancer pain
     Dosage: ON DAY 14
     Route: 065
  22. NALDEMEDINE TOSYLATE [Concomitant]
     Active Substance: NALDEMEDINE TOSYLATE
     Indication: Product used for unknown indication
     Dosage: 1 TABLET, ONCE A DAY, AFTER BREAKFAST
     Route: 048
  23. GEMCITABINE [Suspect]
     Active Substance: GEMCITABINE
     Indication: Pancreatic carcinoma
     Dosage: 10 COURSES
     Route: 065
  24. VONOPRAZAN FUMARATE [Suspect]
     Active Substance: VONOPRAZAN FUMARATE
     Indication: Product used for unknown indication
     Dosage: 1 TABLET ONCE A DAY AFTER BREAKFAST
     Route: 048
  25. VITAMIN B1 [Concomitant]
     Active Substance: THIAMINE HYDROCHLORIDE
     Indication: Product used for unknown indication
     Dosage: 500 ML/DAY LIQUID WITH SUGAR, UNSPECIFIED AMINO ACIDS AND ELECTROLYTES;  (ADMINISTRATION WAS COMP...
     Route: 065
  26. LEUCOVORIN [Suspect]
     Active Substance: LEUCOVORIN\LEUCOVORIN CALCIUM
     Indication: Pancreatic carcinoma
     Dosage: 4 COURSES AS FOLFIRINOX REGIMEN
     Route: 065
  27. LEUCOVORIN [Suspect]
     Active Substance: LEUCOVORIN\LEUCOVORIN CALCIUM
     Indication: Pancreatic carcinoma
     Dosage: 2 COURSES WITH IRINOTECAN AND FLUOROURACIL
     Route: 065
  28. OXALIPLATIN [Suspect]
     Active Substance: OXALIPLATIN
     Indication: Pancreatic carcinoma
     Dosage: 4 COURSES IN FOLFIRINOX REGIMEN
     Route: 065

REACTIONS (3)
  - Drug ineffective [Unknown]
  - Electrocardiogram QT prolonged [Recovered/Resolved]
  - Drug interaction [Recovered/Resolved]
